FAERS Safety Report 10149957 (Version 1)
Quarter: 2014Q2

REPORT INFORMATION
  Report Type: Spontaneous
  Country: US (occurrence: US)
  Receive Date: 20140502
  Receipt Date: 20140502
  Transmission Date: 20141212
  Serious: No
  Sender: FDA-Public Use
  Company Number: US-PFIZER INC-2014048236

PATIENT
  Age: 73 Year
  Sex: Male
  Weight: 66.67 kg

DRUGS (3)
  1. LIDOCAINE HCL [Suspect]
     Indication: ORAL PAIN
     Dosage: UNK, EVERY 4 HRS
     Dates: start: 201401
  2. BIOTIN [Suspect]
     Indication: ORAL PAIN
     Dosage: UNK, EVERY 4 HRS
     Dates: start: 201401
  3. DECADRON [Concomitant]
     Indication: METASTASES TO CENTRAL NERVOUS SYSTEM
     Dosage: 4 MG, 1X/DAY

REACTIONS (1)
  - Drug ineffective [Unknown]
